FAERS Safety Report 9994592 (Version 1)
Quarter: 2014Q1

REPORT INFORMATION
  Report Type: Spontaneous
  Country: FR (occurrence: FR)
  Receive Date: 20140311
  Receipt Date: 20140311
  Transmission Date: 20141002
  Serious: Yes (Hospitalization)
  Sender: FDA-Public Use
  Company Number: FR-ASTRAZENECA-2014SE16419

PATIENT
  Age: 30163 Day
  Sex: Male

DRUGS (9)
  1. BRILIQUE [Suspect]
     Indication: ACUTE CORONARY SYNDROME
     Route: 048
     Dates: start: 20131024, end: 20140119
  2. INEXIUM [Suspect]
     Route: 048
     Dates: start: 20131024
  3. ATACAND [Concomitant]
  4. PRAXILENE [Concomitant]
  5. ASPEGIC [Concomitant]
  6. COMBODART [Concomitant]
  7. DIPROSALIC [Concomitant]
  8. TAHOR [Concomitant]
     Dates: start: 20131024
  9. PROCORALAN [Concomitant]
     Dates: start: 20131024

REACTIONS (7)
  - Haemorrhagic anaemia [Recovered/Resolved]
  - Pruritus generalised [Recovered/Resolved]
  - Myocardial ischaemia [Unknown]
  - Hiatus hernia [Unknown]
  - Oesophagitis [Unknown]
  - Condition aggravated [Unknown]
  - Gastrointestinal haemorrhage [Recovered/Resolved]
